FAERS Safety Report 7607770-X (Version None)
Quarter: 2011Q3

REPORT INFORMATION
  Report Type: 
  Country: None (occurrence: None)
  Receive Date: 20110713
  Receipt Date: 20110601
  Transmission Date: 20111222
  Serious: Yes (Other)
  Sender: FDA-Public Use
  Company Number: PHHY2011JP36357

PATIENT
  Sex: Male
  Weight: 76 kg

DRUGS (5)
  1. AFINITOR [Suspect]
     Indication: METASTATIC RENAL CELL CARCINOMA
     Dosage: 10 MG, DAILY
     Route: 048
     Dates: start: 20100622
  2. HACHIAZULE [Concomitant]
     Dosage: 2 G, UNK
  3. EURODIN [Concomitant]
     Dosage: 2 MG, UNK
     Route: 048
     Dates: start: 20100622
  4. HACHIAZULE [Concomitant]
     Indication: PROPHYLAXIS
     Dosage: 2 MG, UNK
     Dates: start: 20100622, end: 20110405
  5. SUNITINIB MALATE [Concomitant]
     Indication: METASTATIC RENAL CELL CARCINOMA
     Dosage: 50 MG, UNK
     Route: 048
     Dates: start: 20100601, end: 20100607

REACTIONS (2)
  - C-REACTIVE PROTEIN INCREASED [None]
  - BLOOD ALKALINE PHOSPHATASE INCREASED [None]
